FAERS Safety Report 22399414 (Version 1)
Quarter: 2023Q2

REPORT INFORMATION
  Report Type: Other
  Country: GB (occurrence: GB)
  Receive Date: 20230602
  Receipt Date: 20230602
  Transmission Date: 20230722
  Serious: Yes (Other)
  Sender: FDA-Public Use
  Company Number: GB-GLENMARK PHARMACEUTICALS-2023GMK082189

PATIENT

DRUGS (7)
  1. MOMETASONE FUROATE [Suspect]
     Active Substance: MOMETASONE FUROATE
     Indication: Ill-defined disorder
     Dosage: UNK
     Route: 065
     Dates: start: 20230503
  2. BETAMETHASONE SODIUM PHOSPHATE [Concomitant]
     Active Substance: BETAMETHASONE SODIUM PHOSPHATE
     Indication: Ill-defined disorder
     Dosage: UNK (USE 1-2 DROPS IN TO AFFEDED NOSTIL 2-3 TIMES A )
     Route: 045
     Dates: start: 20210325
  3. COCODAMOL [Concomitant]
     Active Substance: ACETAMINOPHEN\CODEINE PHOSPHATE
     Indication: Ill-defined disorder
     Dosage: UNK, QID (TAKE ONE OR TWO TABLETS UP TO FOUR TIMES A DAY)
     Route: 065
     Dates: start: 20230419, end: 20230501
  4. FLUCONAZOLE [Concomitant]
     Active Substance: FLUCONAZOLE
     Indication: Ill-defined disorder
     Dosage: 1 DOSAGE FORM, QD (TAKE ONE DAILY)
     Route: 065
     Dates: start: 20230228, end: 20230307
  5. ACETAMINOPHEN [Concomitant]
     Active Substance: ACETAMINOPHEN
     Indication: Ill-defined disorder
     Dosage: UNK, PRN (1-2 TABLET UP TO FOUR TIMES DAILY WHEN REQUIRED)
     Route: 065
     Dates: start: 20211112
  6. PENICILLIN V [Concomitant]
     Active Substance: PENICILLIN V
     Indication: Ill-defined disorder
     Dosage: 2 DOSAGE FORM, QID (TAKE TWO TABLETS 4 TIMES/DAY)
     Route: 065
     Dates: start: 20230503, end: 20230513
  7. PROPRANOLOL [Concomitant]
     Active Substance: PROPRANOLOL HYDROCHLORIDE
     Indication: Ill-defined disorder
     Dosage: 1 DOSAGE FORM, QD (TAKE ONE TABLET PER DAY )
     Route: 065
     Dates: start: 20220523

REACTIONS (1)
  - Rash [Recovered/Resolved]

NARRATIVE: CASE EVENT DATE: 20230522
